FAERS Safety Report 19415093 (Version 4)
Quarter: 2021Q4

REPORT INFORMATION
  Report Type: Report from Study
  Country: None (occurrence: FR)
  Receive Date: 20210615
  Receipt Date: 20211007
  Transmission Date: 20220304
  Serious: Yes (Other)
  Sender: FDA-Public Use
  Company Number: FR-ABBVIE-21K-056-3946737-00

PATIENT
  Age: 76 Year
  Sex: Male

DRUGS (2)
  1. CARBIDOPA\LEVODOPA [Suspect]
     Active Substance: CARBIDOPA\LEVODOPA
     Indication: Parkinson^s disease
     Route: 050
     Dates: start: 201809, end: 202106
  2. CARBIDOPA\LEVODOPA [Suspect]
     Active Substance: CARBIDOPA\LEVODOPA

REACTIONS (7)
  - Gastric neoplasm [Unknown]
  - Metastasis [Unknown]
  - Oesophageal cancer metastatic [Not Recovered/Not Resolved]
  - Therapeutic product effect decreased [Unknown]
  - Freezing phenomenon [Unknown]
  - General physical health deterioration [Unknown]
  - Device dislocation [Unknown]

NARRATIVE: CASE EVENT DATE: 20210101
